FAERS Safety Report 22205760 (Version 2)
Quarter: 2025Q4

REPORT INFORMATION
  Report Type: Spontaneous
  Country: US (occurrence: US)
  Receive Date: 20230413
  Receipt Date: 20251230
  Transmission Date: 20260117
  Serious: No
  Sender: SANOFI AVENTIS
  Company Number: US-SA-SAC20230411001298

PATIENT
  Age: 53 Year
  Sex: Female

DRUGS (5)
  1. DUPIXENT [Suspect]
     Active Substance: DUPILUMAB
     Indication: Pruritus
     Dosage: 300 MG, QOW
     Route: 058
     Dates: start: 20221018
  2. DUPIXENT [Suspect]
     Active Substance: DUPILUMAB
     Indication: Dermatitis atopic
  3. AMLODIPINE [Concomitant]
     Active Substance: AMLODIPINE BESYLATE
     Dosage: 5-20 MG
  4. HYDROCODONE [Concomitant]
     Active Substance: HYDROCODONE
     Dosage: 5-325MG
  5. LOSARTAN [Concomitant]
     Active Substance: LOSARTAN
     Dosage: UNK

REACTIONS (7)
  - Dermatitis atopic [Unknown]
  - Blister [Unknown]
  - Skin burning sensation [Unknown]
  - Pruritus [Unknown]
  - Skin haemorrhage [Unknown]
  - Product dose omission issue [Unknown]
  - Product use in unapproved indication [Unknown]

NARRATIVE: CASE EVENT DATE: 20221018
